FAERS Safety Report 17393684 (Version 1)
Quarter: 2020Q1

REPORT INFORMATION
  Report Type: Spontaneous
  Country: US (occurrence: US)
  Receive Date: 20200209
  Receipt Date: 20200209
  Transmission Date: 20200409
  Serious: No
  Sender: FDA-Public Use
  Company Number: US-AMGEN-USASP2020020581

PATIENT
  Sex: Female

DRUGS (17)
  1. ENBREL [Suspect]
     Active Substance: ETANERCEPT
     Indication: RHEUMATOID ARTHRITIS
     Dosage: 50 MILLIGRAM
     Route: 065
  2. HUMIRA [Concomitant]
     Active Substance: ADALIMUMAB
     Dosage: 40 MG/0.8, UNK
  3. GABAPENTIN. [Concomitant]
     Active Substance: GABAPENTIN
     Dosage: 600 MILLIGRAM
  4. LEVOTHYROXIN [Concomitant]
     Active Substance: LEVOTHYROXINE
     Dosage: 150 MICROGRAM
  5. LORATADINE. [Concomitant]
     Active Substance: LORATADINE
     Dosage: 10 MILLIGRAM
  6. MAGNESIUM STEARATE [Concomitant]
     Active Substance: MAGNESIUM STEARATE
     Dosage: UNK
  7. METOPROLOL TARTRATE. [Concomitant]
     Active Substance: METOPROLOL TARTRATE
     Dosage: 25 MILLIGRAM
  8. SPIRONOLACTONE. [Concomitant]
     Active Substance: SPIRONOLACTONE
     Dosage: 100 MILLIGRAM
  9. LEVOTHYROXIN [Concomitant]
     Active Substance: LEVOTHYROXINE
     Dosage: 125 MICROGRAM
  10. PANTOPRAZOLE [Concomitant]
     Active Substance: PANTOPRAZOLE
     Dosage: 40 MILLIGRAM
  11. PREDNISONE. [Concomitant]
     Active Substance: PREDNISONE
     Dosage: 10 MILLIGRAM
  12. IBUPROFEN. [Concomitant]
     Active Substance: IBUPROFEN
     Dosage: 800 MILLIGRAM
  13. DIAZEPAM. [Concomitant]
     Active Substance: DIAZEPAM
     Dosage: 10 MG/2ML, UNK
  14. FUROSEMIDE. [Concomitant]
     Active Substance: FUROSEMIDE
     Dosage: 20 MILLIGRAM
  15. METOPROLOL TARTRATE. [Concomitant]
     Active Substance: METOPROLOL TARTRATE
     Dosage: 50 MILLIGRAM
  16. POTASSIUM IODIDE. [Concomitant]
     Active Substance: POTASSIUM IODIDE
     Dosage: UNK
  17. TRAZODONE [Concomitant]
     Active Substance: TRAZODONE HYDROCHLORIDE
     Dosage: 50 MILLIGRAM

REACTIONS (1)
  - Product dose omission [Unknown]
